FAERS Safety Report 5408901-2 (Version None)
Quarter: 2007Q3

REPORT INFORMATION
  Report Type: 
  Country: None (occurrence: None)
  Receive Date: 20070808
  Receipt Date: 20070727
  Transmission Date: 20080115
  Serious: Yes (Other)
  Sender: FDA-Public Use
  Company Number: BR-PFIZER INC-2007064709

PATIENT
  Sex: Female
  Weight: 60 kg

DRUGS (4)
  1. CHAMPIX [Suspect]
     Indication: TOBACCO USER
     Route: 048
  2. LIPITOR [Concomitant]
  3. METFORMIN HCL [Concomitant]
  4. AMLODIPINE BESYLATE [Concomitant]

REACTIONS (7)
  - ABDOMINAL PAIN UPPER [None]
  - ACUTE SINUSITIS [None]
  - BRONCHITIS [None]
  - COUGH [None]
  - ERYTHEMA [None]
  - GASTRIC DISORDER [None]
  - PHARYNGOLARYNGEAL PAIN [None]
